APPROVED DRUG PRODUCT: OMEPRAZOLE MAGNESIUM
Active Ingredient: OMEPRAZOLE MAGNESIUM
Strength: EQ 20MG BASE
Dosage Form/Route: CAPSULE, DELAYED RELEASE;ORAL
Application: A210593 | Product #001
Applicant: SUN PHARMA INDUSTRIES LTD
Approved: Jul 20, 2018 | RLD: No | RS: No | Type: DISCN